FAERS Safety Report 25845680 (Version 1)
Quarter: 2025Q3

REPORT INFORMATION
  Report Type: Spontaneous
  Country: US (occurrence: US)
  Receive Date: 20250925
  Receipt Date: 20250925
  Transmission Date: 20251021
  Serious: No
  Sender: LUPIN
  Company Number: US-LUPIN PHARMACEUTICALS INC.-2025-08420

PATIENT
  Age: 78 Year
  Weight: 56.689 kg

DRUGS (5)
  1. ALBUTEROL SULFATE [Suspect]
     Active Substance: ALBUTEROL SULFATE
     Indication: Chronic obstructive pulmonary disease
     Dosage: SEVERAL PUFFS A DAY SOMETIMES 8 PUFFS DAILY, 2 PUFFS AS NEEDED, BUT IT KEEPS CHANGING, QD
  2. ALBUTEROL SULFATE [Suspect]
     Active Substance: ALBUTEROL SULFATE
     Dosage: SEVERAL PUFFS A DAY SOMETIMES 8 PUFFS DAILY, 2 PUFFS AS NEEDED, BUT IT KEEPS CHANGING, QD
  3. ALBUTEROL SULFATE [Suspect]
     Active Substance: ALBUTEROL SULFATE
     Dosage: SEVERAL PUFFS A DAY SOMETIMES 8 PUFFS DAILY, 2 PUFFS AS NEEDED, BUT IT KEEPS CHANGING, QD
  4. ALBUTEROL SULFATE [Suspect]
     Active Substance: ALBUTEROL SULFATE
     Dosage: SEVERAL PUFFS A DAY SOMETIMES 8 PUFFS DAILY, 2 PUFFS AS NEEDED, BUT IT KEEPS CHANGING, QD
  5. LOSARTAN [Concomitant]
     Active Substance: LOSARTAN
     Indication: Hypertension
     Dosage: UNK UNK, QD
     Route: 065

REACTIONS (4)
  - Dyspnoea [Unknown]
  - Drug dose omission by device [Unknown]
  - Wrong technique in product usage process [Unknown]
  - Off label use [Unknown]
